FAERS Safety Report 12379282 (Version 4)
Quarter: 2016Q2

REPORT INFORMATION
  Report Type: Report from Study
  Country: US (occurrence: US)
  Receive Date: 20160517
  Receipt Date: 20160628
  Transmission Date: 20160815
  Serious: Yes (Hospitalization)
  Sender: FDA-Public Use
  Company Number: US-JNJFOC-20160515136

PATIENT
  Age: 15 Year
  Sex: Female
  Weight: 44 kg

DRUGS (2)
  1. METHOTREXATE [Concomitant]
     Active Substance: METHOTREXATE
     Route: 065
  2. REMICADE [Suspect]
     Active Substance: INFLIXIMAB
     Indication: PRODUCT USED FOR UNKNOWN INDICATION
     Route: 042
     Dates: start: 20110929, end: 20160202

REACTIONS (4)
  - Colitis ulcerative [Recovered/Resolved]
  - Pelvic abscess [Recovered/Resolved]
  - Abdominal pain [Recovered/Resolved]
  - Postoperative ileus [Recovered/Resolved]

NARRATIVE: CASE EVENT DATE: 20160223
